FAERS Safety Report 23681595 (Version 5)
Quarter: 2024Q3

REPORT INFORMATION
  Report Type: Spontaneous
  Country: IT (occurrence: IT)
  Receive Date: 20240328
  Receipt Date: 20240903
  Transmission Date: 20241017
  Serious: Yes (Life-Threatening, Hospitalization, Other)
  Sender: AUROBINDO
  Company Number: IT-AUROBINDO-AUR-APL-2018-028383

PATIENT
  Age: 42 Year
  Sex: Female

DRUGS (16)
  1. MYCOPHENOLIC ACID [Suspect]
     Active Substance: MYCOPHENOLIC ACID
     Indication: Renal and liver transplant
     Dosage: UNK
     Route: 065
  2. MYCOPHENOLIC ACID [Suspect]
     Active Substance: MYCOPHENOLIC ACID
     Indication: Immunosuppressant drug therapy
     Dosage: 250 MILLIGRAM, TWO TIMES A DAY
     Route: 065
  3. MYCOPHENOLIC ACID [Suspect]
     Active Substance: MYCOPHENOLIC ACID
     Dosage: 500 MILLIGRAM, TWO TIMES A DAY
     Route: 065
  4. VALGANCICLOVIR [Suspect]
     Active Substance: VALGANCICLOVIR
     Indication: Antiviral prophylaxis
     Dosage: UNK,FOR OROPHARYNGEAL CANDIDIASIS AND CYTOMEGALOVIRUS (CMV) PROPHYLAXIS
     Route: 065
  5. VALGANCICLOVIR [Suspect]
     Active Substance: VALGANCICLOVIR
     Indication: Cytomegalovirus infection reactivation
     Dosage: UNK,CMV REACTIVATION TREATMENT
     Route: 065
  6. AMBISOME [Suspect]
     Active Substance: AMPHOTERICIN B
     Indication: Mucormycosis
     Dosage: 1 DF, UNK
     Route: 042
  7. AMBISOME [Suspect]
     Active Substance: AMPHOTERICIN B
     Indication: Antifungal treatment
     Dosage: 5 MG/KG, UNK
     Route: 042
  8. METHYLPREDNISOLONE [Suspect]
     Active Substance: METHYLPREDNISOLONE
     Indication: Immunosuppressant drug therapy
     Dosage: UNK
     Route: 042
  9. POSACONAZOLE [Suspect]
     Active Substance: POSACONAZOLE
     Indication: Mucormycosis
     Dosage: 100 MILLIGRAM, 3 TIMES A DAY
     Route: 048
  10. POSACONAZOLE [Suspect]
     Active Substance: POSACONAZOLE
     Indication: Antifungal treatment
  11. TACROLIMUS [Suspect]
     Active Substance: TACROLIMUS
     Indication: Renal and liver transplant
     Dosage: TARGET TROUGH LEVEL OF 4 TO 7 NG/ML ()
     Route: 048
  12. TACROLIMUS [Suspect]
     Active Substance: TACROLIMUS
     Indication: Immunosuppressant drug therapy
     Dosage: 500 MILLIGRAM, TWO TIMES A DAY
     Route: 048
  13. NYSTATIN [Concomitant]
     Active Substance: NYSTATIN
     Indication: Antifungal prophylaxis
     Dosage: UNK
     Route: 065
  14. NYSTATIN [Concomitant]
     Active Substance: NYSTATIN
     Indication: Infection prophylaxis
  15. NYSTATIN [Concomitant]
     Active Substance: NYSTATIN
     Indication: Immunosuppressant drug therapy
  16. NYSTATIN [Concomitant]
     Active Substance: NYSTATIN
     Indication: Oropharyngeal candidiasis

REACTIONS (21)
  - Faeces discoloured [Recovered/Resolved]
  - Melaena [Recovered/Resolved]
  - BK virus infection [Recovered/Resolved]
  - Abdominal pain upper [Recovered/Resolved]
  - Abdominal tenderness [Recovered/Resolved]
  - Mucormycosis [Recovered/Resolved]
  - Gastric ulcer [Recovering/Resolving]
  - Kidney transplant rejection [Recovering/Resolving]
  - Renal impairment [Recovering/Resolving]
  - Cytomegalovirus infection reactivation [Unknown]
  - Chronic gastritis [Unknown]
  - Shock haemorrhagic [Unknown]
  - Upper gastrointestinal haemorrhage [Unknown]
  - Decreased appetite [Recovered/Resolved]
  - Transplant rejection [Recovered/Resolved]
  - Renal tubular necrosis [Recovered/Resolved]
  - Internal haemorrhage [Unknown]
  - Vomiting [Recovered/Resolved]
  - Oral disorder [Unknown]
  - Gastrointestinal disorder [Recovered/Resolved]
  - Off label use [Unknown]
